FAERS Safety Report 21646792 (Version 1)
Quarter: 2022Q4

REPORT INFORMATION
  Report Type: Spontaneous
  Country: CZ (occurrence: CZ)
  Receive Date: 20221127
  Receipt Date: 20221127
  Transmission Date: 20230113
  Serious: Yes (Hospitalization, Other)
  Sender: FDA-Public Use
  Company Number: None

PATIENT
  Age: 44 Year
  Sex: Male
  Weight: 74 kg

DRUGS (12)
  1. PACLITAXEL [Suspect]
     Active Substance: PACLITAXEL
     Indication: Pancreatic carcinoma
     Dosage: A TOTAL OF 30 SUBMISSIONS; DOSE REDUCED TO 75% FROM 4/2022 FOR PARESTHESIAS AND SWELLING OF THE DKK
     Dates: start: 20211206, end: 20220719
  2. GEMCITABIN EBEWE [Concomitant]
     Indication: Pancreatic carcinoma
     Dosage: DOSE 1000MG/M2 ADMINISTERED FOR ALL 30 SERIES (WITHOUT REDUCTION) , UNIT DOSE : 1000 MG/M2 , DURATIO
     Dates: start: 20211206, end: 20220719
  3. ASPIRIN [Concomitant]
     Active Substance: ASPIRIN
     Indication: Vascular graft
     Dosage: 100 MILLIGRAM DAILY; 0-1-0
  4. ZOLOFT [Concomitant]
     Active Substance: SERTRALINE HYDROCHLORIDE
     Indication: Depression
     Dosage: 50 MILLIGRAM DAILY; 1-0-0
  5. TOUJEO [Concomitant]
     Active Substance: INSULIN GLARGINE
     Indication: Diabetes mellitus
     Dosage: 10 PER NIGHT ACCORDING TO GLYCEMIA , UNIT DOSE : 10 IU
  6. THROMBOREDUCTIN [Concomitant]
     Indication: Thrombocytosis
     Dosage: 0.5 MG TAKEN INTERMITTENTLY ACCORDING TO THE DEVELOPMENT OF THE BLOOD COUNT 1-0-0 TO 1-0-1; DISCONTI
     Dates: start: 20220112, end: 20220712
  7. FUROSEMIDE [Concomitant]
     Active Substance: FUROSEMIDE
     Indication: Hyperkalaemia
     Dosage: 1-0-0 EVERY OTHER DAY (LOW DOSE, SO WE DON^T TAKE IT AS A SUSPECT FOR A PART IN THE NEGATIVE REACTIO
  8. IMODIUM [Concomitant]
     Active Substance: LOPERAMIDE HYDROCHLORIDE
     Indication: Diarrhoea
     Dosage: USED 1-0-1 TO CHT FOLFIRINOX/FOLFIRI AS SYMPTOMATIC TREATMENT OF DIARRHEA AFTER IRINOTECAN; AT THE T
  9. FIASP [Concomitant]
     Active Substance: INSULIN ASPART
     Indication: Diabetes mellitus
     Dosage: 8-8-4Y  ACCORDING TO GLYCEMIA  , UNIT DOSE : 8 IU
  10. PANCRELIPASE [Concomitant]
     Active Substance: PANCRELIPASE
     Indication: Pancreatic failure
     Dosage: 4-4-4 WITH FOOD , UNIT DOSE : 25000 IU
  11. FILGRASTIM [Concomitant]
     Active Substance: FILGRASTIM
     Indication: Prophylaxis
     Dosage: ADMINISTERED THE DAY AFTER CHEMOTHERAPY AS A PREVENTIVE MEASURE TO PREVENT THE DEVELOPMENT OF NEUTRO
  12. FILGRASTIM [Concomitant]
     Active Substance: FILGRASTIM
     Indication: Neutropenia

REACTIONS (2)
  - Deafness unilateral [Not Recovered/Not Resolved]
  - Vertigo [Recovering/Resolving]

NARRATIVE: CASE EVENT DATE: 20220720
